FAERS Safety Report 9964596 (Version 1)
Quarter: 2014Q1

REPORT INFORMATION
  Report Type: Spontaneous
  Country: US (occurrence: US)
  Receive Date: 20140305
  Receipt Date: 20140305
  Transmission Date: 20141002
  Serious: No
  Sender: FDA-Public Use
  Company Number: US-AMGEN-USASP2013087089

PATIENT
  Age: 61 Year
  Sex: Female
  Weight: 81.63 kg

DRUGS (10)
  1. ENBREL [Suspect]
     Indication: PRODUCT USED FOR UNKNOWN INDICATION
     Dosage: 50 MG/ML, QWK
     Route: 058
  2. LEVOTHYROXINE [Concomitant]
     Dosage: 112 UG, UNK
  3. ZOLOFT [Concomitant]
     Dosage: 25 MG, UNK
  4. KLONOPIN [Concomitant]
     Dosage: 1 MG, UNK
  5. DICYCLOMINE                        /00068601/ [Concomitant]
     Dosage: 20 MG, UNK
  6. ZYRTEC [Concomitant]
     Dosage: 10 MG, UNK
  7. CALCIUM [Concomitant]
     Dosage: 500 UNK, UNK
  8. CYANOCOBALAMIN [Concomitant]
     Dosage: 1000 UG, UNK
  9. GLUCOSAMINE AND CHONDROITIN WITH MSM [Concomitant]
     Dosage: UNK
  10. ESTRADIOL W/NORETHISTERONE [Concomitant]
     Dosage: UNK 0.5-0.1

REACTIONS (1)
  - Vitamin B complex deficiency [Unknown]
